FAERS Safety Report 7761896-9 (Version None)
Quarter: 2011Q3

REPORT INFORMATION
  Report Type: 
  Country: None (occurrence: None)
  Receive Date: 20110920
  Receipt Date: 20110914
  Transmission Date: 20111222
  Serious: Yes (Hospitalization)
  Sender: FDA-Public Use
  Company Number: FR-B.I. PHARMACEUTICALS,INC./RIDGEFIELD-2011-FF-00846FF

PATIENT
  Sex: Female
  Weight: 55 kg

DRUGS (6)
  1. SPECIAFOLDINE [Concomitant]
     Indication: ANAEMIA
     Dosage: 15 MG
     Route: 048
     Dates: start: 20110909
  2. FERROUS SULFATE TAB [Concomitant]
     Indication: ANAEMIA
     Dosage: 160 MG
     Route: 048
     Dates: start: 20110909
  3. PRADAXA [Suspect]
     Indication: THROMBOSIS PROPHYLAXIS
     Dosage: 150 MG
     Route: 048
     Dates: start: 20110908, end: 20110912
  4. PRAVASTATIN [Concomitant]
     Indication: HYPERCHOLESTEROLAEMIA
     Dosage: 20 MG
     Route: 048
     Dates: start: 20110909
  5. EXFORGE [Concomitant]
     Indication: HYPERTENSION
     Route: 048
     Dates: start: 20110909
  6. INDAPAMIDE [Concomitant]
     Indication: HYPERTENSION
     Dosage: 1.5 MG
     Route: 048
     Dates: start: 20110909

REACTIONS (1)
  - DEEP VEIN THROMBOSIS [None]
